FAERS Safety Report 6842087-2 (Version None)
Quarter: 2010Q3

REPORT INFORMATION
  Report Type: 
  Country: None (occurrence: None)
  Receive Date: 20100714
  Receipt Date: 20070722
  Transmission Date: 20110219
  Serious: No
  Sender: FDA-Public Use
  Company Number: US-PFIZER INC-2007061400

PATIENT
  Sex: Male
  Weight: 77.272 kg

DRUGS (4)
  1. CHANTIX [Suspect]
     Indication: SMOKING CESSATION THERAPY
     Dates: start: 20070701, end: 20070718
  2. TRAVOPROST [Concomitant]
     Indication: GLAUCOMA
  3. ADVAIR DISKUS 100/50 [Concomitant]
  4. COMBIVENT [Concomitant]

REACTIONS (9)
  - ABDOMINAL PAIN [None]
  - ABDOMINAL PAIN UPPER [None]
  - CONSTIPATION [None]
  - DYSURIA [None]
  - FATIGUE [None]
  - MALAISE [None]
  - NAUSEA [None]
  - RENAL DISORDER [None]
  - VOMITING [None]
